FAERS Safety Report 6261509-1 (Version None)
Quarter: 2009Q3

REPORT INFORMATION
  Report Type: 
  Country: None (occurrence: None)
  Receive Date: 20090707
  Receipt Date: 20090707
  Transmission Date: 20100115
  Serious: Yes (Life-Threatening)
  Sender: FDA-Public Use
  Company Number: None

PATIENT
  Age: 57 Year
  Sex: Female
  Weight: 81.6475 kg

DRUGS (1)
  1. VICODIN [Suspect]
     Indication: KNEE ARTHROPLASTY
     Dosage: EVERY 4 HOURS
     Dates: start: 20070404, end: 20070601

REACTIONS (6)
  - ANXIETY [None]
  - DRUG DEPENDENCE [None]
  - FEELING COLD [None]
  - MALAISE [None]
  - NAUSEA [None]
  - TREMOR [None]
